FAERS Safety Report 10133471 (Version 1)
Quarter: 2014Q2

REPORT INFORMATION
  Report Type: Spontaneous
  Country: US (occurrence: US)
  Receive Date: 20140428
  Receipt Date: 20140428
  Transmission Date: 20141212
  Serious: Yes (Death, Other)
  Sender: FDA-Public Use
  Company Number: US-BAYER-2014-058725

PATIENT
  Age: 86 Year
  Sex: Female

DRUGS (2)
  1. CIPRO [Suspect]
     Indication: URINARY TRACT INFECTION
     Dosage: UNK
     Dates: start: 2007
  2. CIPRO [Suspect]
     Indication: URINARY TRACT INFECTION
     Dosage: UNK
     Dates: start: 20100415, end: 20100421

REACTIONS (6)
  - Death [Fatal]
  - Urinary retention [None]
  - Bedridden [None]
  - Mental disorder [None]
  - Bladder catheterisation [None]
  - Anxiety [None]
